FAERS Safety Report 5763780-9 (Version None)
Quarter: 2008Q2

REPORT INFORMATION
  Report Type: 
  Country: None (occurrence: None)
  Receive Date: 20080604
  Receipt Date: 20080604
  Transmission Date: 20081010
  Serious: Yes (Hospitalization)
  Sender: FDA-Public Use
  Company Number: None

PATIENT
  Sex: Female
  Weight: 48 kg

DRUGS (4)
  1. FLUOROURACIL [Suspect]
     Dosage: 8120 MG
  2. BEVACIZUMAB (RHUMAB VEGF) [Suspect]
     Dosage: 462 MG
  3. LEUCOVORIN CALCIUM [Suspect]
     Dosage: 1160 MG
  4. ELOXATIN [Suspect]
     Dosage: 246 MG

REACTIONS (4)
  - CONDITION AGGRAVATED [None]
  - EMPHYSEMA [None]
  - HYPOTENSION [None]
  - PYREXIA [None]
